FAERS Safety Report 17733960 (Version 1)
Quarter: 2020Q2

REPORT INFORMATION
  Report Type: Spontaneous
  Country: US (occurrence: US)
  Receive Date: 20200501
  Receipt Date: 20200501
  Transmission Date: 20200714
  Serious: Yes (Hospitalization, Disabling)
  Sender: FDA-Public Use
  Company Number: None

PATIENT
  Age: 45 Year
  Sex: Female
  Weight: 52.65 kg

DRUGS (2)
  1. MULTIVITAMINS [Concomitant]
     Active Substance: VITAMINS
  2. LEVOFLOXACIN. [Suspect]
     Active Substance: LEVOFLOXACIN
     Indication: KIDNEY INFECTION
     Dosage: ?          QUANTITY:5 TABLET(S);?
     Route: 048
     Dates: start: 20200425, end: 20200425

REACTIONS (11)
  - Hypoaesthesia [None]
  - Discomfort [None]
  - Pyrexia [None]
  - Paraesthesia [None]
  - Near death experience [None]
  - Heart rate increased [None]
  - Dyspnoea [None]
  - Cold sweat [None]
  - Sluggishness [None]
  - Muscle spasms [None]
  - Chills [None]

NARRATIVE: CASE EVENT DATE: 20200425
